FAERS Safety Report 6294694-6 (Version None)
Quarter: 2009Q3

REPORT INFORMATION
  Report Type: 
  Country: None (occurrence: None)
  Receive Date: 20090803
  Receipt Date: 20090721
  Transmission Date: 20100115
  Serious: Yes (Hospitalization)
  Sender: FDA-Public Use
  Company Number: A0799762A

PATIENT
  Age: 52 Year
  Sex: Male

DRUGS (1)
  1. AVANDIA [Suspect]
     Dosage: 2MG PER DAY
     Route: 065
     Dates: start: 20060408, end: 20071002

REACTIONS (4)
  - ANKLE FRACTURE [None]
  - DYSPNOEA [None]
  - LOWER LIMB FRACTURE [None]
  - OEDEMA PERIPHERAL [None]
